FAERS Safety Report 7525488-9 (Version None)
Quarter: 2011Q2

REPORT INFORMATION
  Report Type: 
  Country: None (occurrence: None)
  Receive Date: 20110606
  Receipt Date: 20110531
  Transmission Date: 20111010
  Serious: Yes (Hospitalization)
  Sender: FDA-Public Use
  Company Number: FR-ROCHE-780191

PATIENT
  Age: 57 Year
  Sex: Male

DRUGS (4)
  1. METHOTREXATE SODIUM [Concomitant]
  2. ACTEMRA [Suspect]
     Indication: RHEUMATOID ARTHRITIS
     Dosage: FREQUENCY: MONTHLY
     Route: 042
     Dates: start: 20110301
  3. FOLIC ACID [Concomitant]
  4. ACETAMINOPHEN AND TRAMADOL HCL [Concomitant]

REACTIONS (2)
  - PHLEBITIS [None]
  - OEDEMA PERIPHERAL [None]
